FAERS Safety Report 8337574-4 (Version None)
Quarter: 2012Q2

REPORT INFORMATION
  Report Type: 
  Country: None (occurrence: None)
  Receive Date: 20120504
  Receipt Date: 20101109
  Transmission Date: 20120825
  Serious: Yes (Hospitalization)
  Sender: FDA-Public Use
  Company Number: FR-ROCHE-740399

PATIENT
  Age: 71 Year
  Sex: Female

DRUGS (2)
  1. TAXOTERE [Concomitant]
     Indication: BREAST CANCER METASTATIC
  2. AVASTIN [Suspect]
     Indication: BREAST CANCER METASTATIC
     Dosage: FREQ: DEPENDING ON CYCLE
     Route: 042
     Dates: start: 20100809, end: 20100810

REACTIONS (3)
  - DIARRHOEA [None]
  - COLITIS [None]
  - BONE MARROW FAILURE [None]
